FAERS Safety Report 8541473 (Version 3)
Quarter: 2015Q3

REPORT INFORMATION
  Report Type: Spontaneous
  Country: JP (occurrence: None)
  Receive Date: 20120424
  Receipt Date: 20150706
  Transmission Date: 20151125
  Serious: Yes (Hospitalization, Other)
  Sender: FDA-Public Use
  Company Number: 2008JP004128

PATIENT
  Age: 36 Year
  Sex: Female
  Weight: 52 kg

DRUGS (31)
  1. CELECOX (CELECOXIB) TABLET [Concomitant]
  2. GASTER [Concomitant]
     Active Substance: FAMOTIDINE
  3. MUCODYNE (CARBOCISTEINE) [Concomitant]
     Active Substance: CARBOCYSTEINE
  4. PETROLATUM (PETROLATUM) [Concomitant]
  5. LOXONIN (LOXOPROFEN SODIUM) [Concomitant]
     Active Substance: LOXOPROFEN SODIUM
  6. SENNASID /00571901/ (SENNOSIDE A+B) TABLET [Concomitant]
  7. FUNGIZONE [Concomitant]
     Active Substance: AMPHOTERICIN B
  8. TAMIFLU [Concomitant]
     Active Substance: OSELTAMIVIR PHOSPHATE
  9. HIRUDOID (HEPARINOID) [Concomitant]
  10. FERROMIA /00023520/ (FERROUS SODIUM CITRATE) [Concomitant]
  11. PROGRAF [Suspect]
     Active Substance: TACROLIMUS\TACROLIMUS ANHYDROUS
     Indication: LUPUS NEPHRITIS
     Dosage: 3 MG, UNKNOWN/D, ORAL, 2MG, ORAL,
     Route: 048
     Dates: start: 20080208, end: 20080218
  12. WARFARIN SODIUM. [Concomitant]
     Active Substance: WARFARIN SODIUM
  13. TAKEPRON (LANSOPRAZOLE) [Concomitant]
     Active Substance: LANSOPRAZOLE
  14. EDIROL (ELDECALCITOL) CAPSULE [Concomitant]
     Active Substance: ELDECALCITOL
  15. HYALEIN (HYALURONATE SODIUM) [Concomitant]
  16. AZUNOL (SODIUM GUALENATE) [Concomitant]
  17. RHYTHMY (RILMAZAFONE HYDROCHLORIDE) TABLET [Concomitant]
  18. ALFAROL [Concomitant]
     Active Substance: ALFACALCIDOL
  19. ROXATIDINE ACETATE HYDROCHLORIDE [Concomitant]
     Active Substance: ROXATIDINE ACETATE HYDROCHLORIDE
  20. RINDERON-VG (BETAMETHASONE VALERATE, GENTAMICIN SULFATE) OINTMENT [Concomitant]
  21. PREDNISOLONE. [Suspect]
     Active Substance: PREDNISOLONE
     Indication: INTERSTITIAL LUNG DISEASE
     Dosage: SEE IMAGE
     Route: 048
     Dates: start: 20071214, end: 20080110
  22. SIMVASTATIN. [Concomitant]
     Active Substance: SIMVASTATIN
  23. PANDEL [Concomitant]
     Active Substance: HYDROCORTISONE PROBUTATE
  24. LEVOFLOXACIN. [Concomitant]
     Active Substance: LEVOFLOXACIN
  25. VOLTAREN /00372302/ (DICLOFENAC SODIUM) MODIFIED-RELEASE CAPSULE, HARD [Concomitant]
  26. LIXIANA (EDOXABAN TOSILATE) TABLET [Concomitant]
  27. PREDNISOLONE. [Suspect]
     Active Substance: PREDNISOLONE
     Indication: LUPUS NEPHRITIS
     Dosage: SEE IMAGE
     Route: 048
     Dates: start: 20071214, end: 20080110
  28. BLOPRESS (CANESARTAN CILEXETIL) [Concomitant]
  29. COLDRIN (CLOFEDANOL HYDROCHLORIDE) [Concomitant]
  30. MARZULENE-S (AZULENE, LEVOGLUTAMIDE, SODIUM GUALENATE) [Concomitant]
  31. MOHRUS (KETOPROFEN) TAPE (INCLUDING POULTICE) [Concomitant]

REACTIONS (13)
  - Hypercholesterolaemia [None]
  - Iron deficiency anaemia [None]
  - Cystitis [None]
  - Insomnia [None]
  - Influenza [None]
  - Interstitial lung disease [None]
  - Blood triglycerides increased [None]
  - Osteonecrosis [None]
  - Eczema [None]
  - Upper respiratory tract inflammation [None]
  - Constipation [None]
  - Arthralgia [None]
  - Lymphocyte count decreased [None]

NARRATIVE: CASE EVENT DATE: 20080220
